FAERS Safety Report 5824199-5 (Version None)
Quarter: 2008Q3

REPORT INFORMATION
  Report Type: 
  Country: None (occurrence: None)
  Receive Date: 20080728
  Receipt Date: 20080718
  Transmission Date: 20090109
  Serious: Yes (Other)
  Sender: FDA-Public Use
  Company Number: US-BAYER-200826809NA

PATIENT
  Age: 42 Year
  Sex: Female

DRUGS (1)
  1. AVELOX [Suspect]
     Indication: UPPER RESPIRATORY TRACT INFECTION
     Dosage: TOTAL DAILY DOSE: 400 MG  UNIT DOSE: 400 MG
     Route: 048
     Dates: start: 20080625

REACTIONS (4)
  - ANAPHYLACTIC SHOCK [None]
  - PRURITUS GENERALISED [None]
  - RASH GENERALISED [None]
  - THROAT TIGHTNESS [None]
